FAERS Safety Report 8949668 (Version 1)
Quarter: 2012Q4

REPORT INFORMATION
  Report Type: 
  Country: US (occurrence: US)
  Receive Date: 20121206
  Receipt Date: 20121206
  Transmission Date: 20130627
  Serious: Yes (Life-Threatening, Hospitalization)
  Sender: FDA-Public Use
  Company Number: US-ROXANE LABORATORIES, INC.-2012-RO-02495RO

PATIENT
  Age: 20 Year
  Sex: Male

DRUGS (4)
  1. CITALOPRAM [Suspect]
  2. LEVETIRACETAM [Suspect]
  3. DOXEPIN [Suspect]
  4. LIPID EMULSION [Suspect]
     Indication: TOXICITY TO VARIOUS AGENTS
     Route: 042

REACTIONS (4)
  - Toxicity to various agents [Recovered/Resolved]
  - Cardiac arrest [Recovered/Resolved]
  - Pancreatitis [Unknown]
  - Grand mal convulsion [Unknown]
